FAERS Safety Report 15590855 (Version 1)
Quarter: 2018Q4

REPORT INFORMATION
  Report Type: Spontaneous
  Country: US (occurrence: US)
  Receive Date: 20181106
  Receipt Date: 20181106
  Transmission Date: 20190205
  Serious: Yes (Death, Other)
  Sender: FDA-Public Use
  Company Number: US-INCYTE CORPORATION-2018IN011313

PATIENT

DRUGS (1)
  1. JAKAFI [Suspect]
     Active Substance: RUXOLITINIB
     Indication: MYELOFIBROSIS
     Dosage: 10MG + 20MG ALTERNATE TAKING 1 TABLET DAILY THEN TAKING 2 TABLETS DAILY
     Route: 048
     Dates: start: 201412

REACTIONS (2)
  - Inappropriate schedule of product administration [Unknown]
  - Death [Fatal]
